FAERS Safety Report 25463685 (Version 1)
Quarter: 2025Q2

REPORT INFORMATION
  Report Type: Spontaneous
  Country: PT (occurrence: PT)
  Receive Date: 20250621
  Receipt Date: 20250621
  Transmission Date: 20250716
  Serious: Yes (Hospitalization, Other)
  Sender: CELLTRION
  Company Number: PT-AMGEN-PRTSP2025013612

PATIENT

DRUGS (1)
  1. TRASTUZUMAB [Suspect]
     Active Substance: TRASTUZUMAB
     Indication: Product used for unknown indication
     Route: 065

REACTIONS (10)
  - N-terminal prohormone brain natriuretic peptide increased [Unknown]
  - Injection site discolouration [Unknown]
  - Jugular vein distension [Unknown]
  - Serum ferritin decreased [Unknown]
  - Transferrin saturation decreased [Unknown]
  - Cardiotoxicity [Unknown]
  - Cardiac failure [Unknown]
  - Asthenia [Unknown]
  - Haemoglobin decreased [Unknown]
  - Dyspnoea [Unknown]
